FAERS Safety Report 13757992 (Version 1)
Quarter: 2017Q3

REPORT INFORMATION
  Report Type: Spontaneous
  Country: US (occurrence: US)
  Receive Date: 20170717
  Receipt Date: 20170717
  Transmission Date: 20171127
  Serious: No
  Sender: FDA-Public Use
  Company Number: US-TEVA-776473ACC

PATIENT
  Sex: Female

DRUGS (1)
  1. ESOMEPRAZOLE [Suspect]
     Active Substance: ESOMEPRAZOLE
     Dosage: DELAYED RELEASE CAPSULES
     Route: 065

REACTIONS (1)
  - Drug ineffective [Unknown]
